FAERS Safety Report 18107440 (Version 2)
Quarter: 2020Q3

REPORT INFORMATION
  Report Type: Other
  Country: US (occurrence: US)
  Receive Date: 20200804
  Receipt Date: 20200807
  Transmission Date: 20201103
  Serious: Yes (Hospitalization)
  Sender: FDA-Public Use
  Company Number: US-ROCHE-2650698

PATIENT
  Age: 56 Year
  Sex: Female
  Weight: 90.8 kg

DRUGS (5)
  1. KLONOPIN [Suspect]
     Active Substance: CLONAZEPAM
     Indication: PANIC ATTACK
     Dosage: THERAPEUTIC STATUS: ONGOING: YES
     Route: 048
  2. PROZAC [Concomitant]
     Active Substance: FLUOXETINE HYDROCHLORIDE
  3. LISINOPRIL. [Concomitant]
     Active Substance: LISINOPRIL
  4. SPIRONOLACTONE. [Concomitant]
     Active Substance: SPIRONOLACTONE
  5. OCREVUS [Suspect]
     Active Substance: OCRELIZUMAB
     Indication: PRIMARY PROGRESSIVE MULTIPLE SCLEROSIS
     Dosage: THERAPEUTIC STATUS: ONGOING: NO
     Route: 042
     Dates: start: 20191001

REACTIONS (5)
  - Myocardial infarction [Recovered/Resolved]
  - Diplopia [Not Recovered/Not Resolved]
  - Palpitations [Recovered/Resolved]
  - Renal failure [Unknown]
  - Pneumonia [Recovered/Resolved]

NARRATIVE: CASE EVENT DATE: 202006
